FAERS Safety Report 5449799-6 (Version None)
Quarter: 2007Q3

REPORT INFORMATION
  Report Type: 
  Country: None (occurrence: None)
  Receive Date: 20070910
  Receipt Date: 20070830
  Transmission Date: 20080115
  Serious: Yes (Hospitalization)
  Sender: FDA-Public Use
  Company Number: 2007SP017583

PATIENT
  Age: 50 Year
  Sex: Male

DRUGS (4)
  1. CLARITIN [Suspect]
     Indication: ECZEMA NUMMULAR
     Dosage: ;PO
     Route: 048
     Dates: start: 20070501, end: 20070501
  2. FLOMOX [Concomitant]
  3. PREDONINE [Concomitant]
  4. MUCOSTA [Concomitant]

REACTIONS (3)
  - LIVER DISORDER [None]
  - LYMPHOCYTE STIMULATION TEST POSITIVE [None]
  - MALAISE [None]
